FAERS Safety Report 10748933 (Version 1)
Quarter: 2015Q1

REPORT INFORMATION
  Report Type: Spontaneous
  Country: US (occurrence: None)
  Receive Date: 20150120
  Receipt Date: 20150120
  Transmission Date: 20150721
  Serious: No
  Sender: FDA-Public Use
  Company Number: AEGR000820

PATIENT
  Age: 66 Year
  Sex: Female
  Weight: 73.5 kg

DRUGS (3)
  1. JUXTAPID [Suspect]
     Active Substance: LOMITAPIDE MESYLATE
     Indication: TYPE IIA HYPERLIPIDAEMIA
     Route: 048
     Dates: start: 20141010, end: 20141010
  2. ATORVASTATIN [Concomitant]
     Active Substance: ATORVASTATIN
  3. LOVAZA (OMEGA-3-ACID ETHY LESTER) [Concomitant]

REACTIONS (1)
  - Diarrhoea [None]

NARRATIVE: CASE EVENT DATE: 20141011
